FAERS Safety Report 19354329 (Version 1)
Quarter: 2021Q2

REPORT INFORMATION
  Report Type: Spontaneous
  Country: US (occurrence: US)
  Receive Date: 20210602
  Receipt Date: 20210602
  Transmission Date: 20210717
  Serious: Yes (Other)
  Sender: FDA-Public Use
  Company Number: US-ROCHE-2840282

PATIENT
  Sex: Female
  Weight: 113.5 kg

DRUGS (5)
  1. OCREVUS [Suspect]
     Active Substance: OCRELIZUMAB
     Indication: MULTIPLE SCLEROSIS
     Dosage: ONGOING: YES
     Route: 042
     Dates: start: 202003
  2. MORPHINE [Concomitant]
     Active Substance: MORPHINE
  3. BETASERON [Concomitant]
     Active Substance: INTERFERON BETA-1B
  4. AMPYRA [Concomitant]
     Active Substance: DALFAMPRIDINE
  5. BACLOFEN. [Concomitant]
     Active Substance: BACLOFEN

REACTIONS (2)
  - Muscle spasms [Recovered/Resolved]
  - Angina pectoris [Recovered/Resolved]
